FAERS Safety Report 6007362-2 (Version None)
Quarter: 2008Q4

REPORT INFORMATION
  Report Type: 
  Country: None (occurrence: None)
  Receive Date: 20081217
  Receipt Date: 20080317
  Transmission Date: 20090506
  Serious: No
  Sender: FDA-Public Use
  Company Number: US-ASTRAZENECA-2008UW05416

PATIENT
  Age: 76 Year
  Sex: Female
  Weight: 70.3 kg

DRUGS (4)
  1. CRESTOR [Suspect]
     Route: 048
  2. COUMADIN [Concomitant]
  3. FISH OIL [Concomitant]
  4. DIGOXIN [Concomitant]

REACTIONS (1)
  - MUSCLE SPASMS [None]
